FAERS Safety Report 17546306 (Version 1)
Quarter: 2020Q1

REPORT INFORMATION
  Report Type: Report from Study
  Country: IT (occurrence: IT)
  Receive Date: 20200316
  Receipt Date: 20200316
  Transmission Date: 20200409
  Serious: Yes (Other)
  Sender: FDA-Public Use
  Company Number: IT-INCYTE CORPORATION-2019IN005896

PATIENT

DRUGS (5)
  1. JAKAVI [Suspect]
     Active Substance: RUXOLITINIB
     Dosage: 25 OT, UNK
     Route: 065
     Dates: start: 20180307, end: 20180407
  2. JAKAVI [Suspect]
     Active Substance: RUXOLITINIB
     Dosage: 10 OT, UNK
     Route: 065
     Dates: start: 20171117, end: 20171214
  3. JAKAVI [Suspect]
     Active Substance: RUXOLITINIB
     Dosage: 20 OT, UNK
     Route: 065
     Dates: start: 20171215, end: 20180306
  4. JAKAVI [Suspect]
     Active Substance: RUXOLITINIB
     Indication: MYELOFIBROSIS
     Dosage: 40 OT, UNK
     Route: 065
     Dates: start: 20171020, end: 20171116
  5. JAKAVI [Suspect]
     Active Substance: RUXOLITINIB
     Dosage: 30 OT, UNK
     Route: 065
     Dates: start: 20180408

REACTIONS (2)
  - Nasopharyngitis [Unknown]
  - Soft tissue infection [Unknown]

NARRATIVE: CASE EVENT DATE: 20190528
